FAERS Safety Report 20428665 (Version 1)
Quarter: 2022Q1

REPORT INFORMATION
  Report Type: Spontaneous
  Country: PL (occurrence: PL)
  Receive Date: 20220204
  Receipt Date: 20220204
  Transmission Date: 20220423
  Serious: Yes (Hospitalization)
  Sender: FDA-Public Use
  Company Number: PL-ALVOGEN-2022-ALVOGEN-118276

PATIENT
  Age: 30 Year
  Sex: Female

DRUGS (1)
  1. FLECAINIDE [Suspect]
     Active Substance: FLECAINIDE
     Indication: Atrial tachycardia
     Dosage: TOTAL: 120 MG, SINGLE DOSE
     Route: 042

REACTIONS (1)
  - Stress cardiomyopathy [Recovered/Resolved]
